FAERS Safety Report 15352058 (Version 1)
Quarter: 2018Q3

REPORT INFORMATION
  Report Type: Spontaneous
  Country: US (occurrence: US)
  Receive Date: 20180905
  Receipt Date: 20180905
  Transmission Date: 20181010
  Serious: No
  Sender: FDA-Public Use
  Company Number: US-VERTEX PHARMACEUTICALS-2018-006327

PATIENT
  Age: 19 Year
  Sex: Female

DRUGS (4)
  1. SYMDEKO [Suspect]
     Active Substance: IVACAFTOR\TEZACAFTOR
     Indication: CYSTIC FIBROSIS
     Dosage: 100MG TEZACAFTOR/150MG IVACAFTOR AM; 150MG IVACAFTOR PM
     Route: 048
     Dates: start: 20180510
  2. CROMOLYN                           /00082101/ [Concomitant]
     Active Substance: CROMOLYN
  3. URSODIOL. [Concomitant]
     Active Substance: URSODIOL
  4. ACETYLCYSTEIN [Concomitant]
     Active Substance: ACETYLCYSTEINE

REACTIONS (1)
  - Nasopharyngitis [Unknown]

NARRATIVE: CASE EVENT DATE: 20180820
